FAERS Safety Report 13024016 (Version 1)
Quarter: 2016Q4

REPORT INFORMATION
  Report Type: Spontaneous
  Country: FR (occurrence: FR)
  Receive Date: 20161213
  Receipt Date: 20161213
  Transmission Date: 20170207
  Serious: Yes (Other)
  Sender: FDA-Public Use
  Company Number: FR-PFIZER INC-2012322968

PATIENT
  Sex: Male

DRUGS (6)
  1. DEBRIDAT [Suspect]
     Active Substance: TRIMEBUTINE MALEATE
     Dosage: UNK
     Route: 042
  2. FLAGYL [Concomitant]
     Active Substance: METRONIDAZOLE\METRONIDAZOLE HYDROCHLORIDE
     Dosage: UNK
     Dates: start: 20120807
  3. TAZOCILLINE [Concomitant]
     Active Substance: PIPERACILLIN SODIUM\TAZOBACTAM SODIUM
     Dosage: UNK
     Dates: start: 20120807
  4. AZANTAC [Concomitant]
     Active Substance: RANITIDINE HYDROCHLORIDE
     Dosage: 3 DF, UNK
     Route: 042
     Dates: start: 20120809
  5. SPASFON [Concomitant]
     Active Substance: PHLOROGLUCINOL
     Dosage: 3 DF, UNK
     Route: 042
     Dates: start: 20120809
  6. ATRACURIUM BESILATE [Suspect]
     Active Substance: ATRACURIUM BESYLATE
     Dosage: 3 DF, SINGLE
     Route: 042
     Dates: start: 20120809

REACTIONS (5)
  - Paralysis [Recovered/Resolved]
  - Hypovolaemic shock [Recovered/Resolved]
  - Medication error [Recovered/Resolved]
  - Areflexia [Recovered/Resolved]
  - Respiratory distress [Recovered/Resolved]

NARRATIVE: CASE EVENT DATE: 20120809
